FAERS Safety Report 20938131 (Version 1)
Quarter: 2022Q2

REPORT INFORMATION
  Report Type: Spontaneous
  Country: US (occurrence: US)
  Receive Date: 20220609
  Receipt Date: 20220609
  Transmission Date: 20220721
  Serious: No
  Sender: FDA-Public Use
  Company Number: US-UCBSA-2022012570

PATIENT
  Age: 3 Year
  Sex: Female

DRUGS (2)
  1. NAYZILAM [Suspect]
     Active Substance: MIDAZOLAM
     Indication: Status epilepticus
     Dosage: UNK
     Route: 045
  2. NAYZILAM [Suspect]
     Active Substance: MIDAZOLAM
     Indication: Off label use

REACTIONS (1)
  - No adverse event [Unknown]
